FAERS Safety Report 5193871-5 (Version None)
Quarter: 2006Q4

REPORT INFORMATION
  Report Type: 
  Country: None (occurrence: None)
  Receive Date: 20061222
  Receipt Date: 20061214
  Transmission Date: 20070319
  Serious: Yes (Hospitalization, Other)
  Sender: FDA-Public Use
  Company Number: 2005140611

PATIENT
  Age: 37 Year
  Sex: Male

DRUGS (12)
  1. NEURONTIN [Suspect]
     Indication: ATTENTION DEFICIT/HYPERACTIVITY DISORDER
     Dosage: SEE IMAGE
     Dates: start: 20011010
  2. NEURONTIN [Suspect]
     Indication: ESSENTIAL TREMOR
     Dosage: SEE IMAGE
     Dates: start: 20011010
  3. NEURONTIN [Suspect]
     Indication: LIMB DISCOMFORT
     Dosage: SEE IMAGE
     Dates: start: 20011010
  4. NEURONTIN [Suspect]
     Indication: MIGRAINE
     Dosage: SEE IMAGE
     Dates: start: 20011010
  5. NEURONTIN [Suspect]
     Indication: ATTENTION DEFICIT/HYPERACTIVITY DISORDER
     Dosage: SEE IMAGE
     Dates: start: 20021123
  6. NEURONTIN [Suspect]
     Indication: ESSENTIAL TREMOR
     Dosage: SEE IMAGE
     Dates: start: 20021123
  7. NEURONTIN [Suspect]
     Indication: LIMB DISCOMFORT
     Dosage: SEE IMAGE
     Dates: start: 20021123
  8. NEURONTIN [Suspect]
     Indication: MIGRAINE
     Dosage: SEE IMAGE
     Dates: start: 20021123
  9. LEXAPRO [Concomitant]
  10. HYDROCODONE BITARTRATE + ACETAMINOPHEN [Concomitant]
  11. TOPROL-XL [Concomitant]
  12. TOPAMAX [Concomitant]

REACTIONS (7)
  - ACCIDENT [None]
  - DEPRESSION [None]
  - DRUG INEFFECTIVE [None]
  - OVERDOSE [None]
  - SELF MUTILATION [None]
  - SUICIDE ATTEMPT [None]
  - SURGERY [None]
